FAERS Safety Report 23069490 (Version 1)
Quarter: 2023Q4

REPORT INFORMATION
  Report Type: Spontaneous
  Country: US (occurrence: US)
  Receive Date: 20231016
  Receipt Date: 20231016
  Transmission Date: 20240110
  Serious: No
  Sender: FDA-Public Use
  Company Number: US-SA-SAC20231012001694

PATIENT
  Sex: Female
  Weight: 42.9 kg

DRUGS (6)
  1. DUPIXENT [Suspect]
     Active Substance: DUPILUMAB
     Indication: Dermatitis atopic
     Dosage: 200 MG, QOW
     Route: 058
  2. NORDITROPIN [Concomitant]
     Active Substance: SOMATROPIN
  3. VITAMINS [Concomitant]
     Active Substance: VITAMINS
  4. BUDESONIDE [Concomitant]
     Active Substance: BUDESONIDE
  5. RESTORE [MESTEROLONE] [Concomitant]
  6. DIETARY SUPPLEMENT\HERBALS [Concomitant]
     Active Substance: DIETARY SUPPLEMENT\HERBALS

REACTIONS (1)
  - Intentional product misuse [Unknown]
